FAERS Safety Report 20489019 (Version 1)
Quarter: 2022Q1

REPORT INFORMATION
  Report Type: Spontaneous
  Country: US (occurrence: None)
  Receive Date: 20220217
  Receipt Date: 20220217
  Transmission Date: 20220424
  Serious: Yes (Hospitalization)
  Sender: FDA-Public Use
  Company Number: None

PATIENT
  Age: 75 Year
  Sex: Female
  Weight: 64.9 kg

DRUGS (2)
  1. PACLITAXEL [Suspect]
     Active Substance: PACLITAXEL
     Indication: Ovarian cancer
     Dosage: OTHER FREQUENCY : D1, D8, AND D;?
     Route: 042
     Dates: start: 20210909, end: 20210916
  2. LAPATINIB [Suspect]
     Active Substance: LAPATINIB
     Indication: Ovarian cancer
     Dosage: OTHER FREQUENCY : BID ON D6, 7, 12;?
     Route: 048
     Dates: start: 20210914, end: 20210922

REACTIONS (9)
  - Pyrexia [None]
  - White blood cell count increased [None]
  - Thrombocytopenia [None]
  - Hypertension [None]
  - Acute kidney injury [None]
  - Acute respiratory failure [None]
  - Bronchiectasis [None]
  - Pneumonia [None]
  - Acute myeloid leukaemia [None]

NARRATIVE: CASE EVENT DATE: 20211004
